FAERS Safety Report 7989621-7 (Version None)
Quarter: 2011Q4

REPORT INFORMATION
  Report Type: 
  Country: None (occurrence: None)
  Receive Date: 20111219
  Receipt Date: 20111208
  Transmission Date: 20120403
  Serious: Yes (Life-Threatening, Hospitalization)
  Sender: FDA-Public Use
  Company Number: FR-SANOFI-AVENTIS-2011SA068256

PATIENT
  Age: 46 Year
  Sex: Male

DRUGS (19)
  1. PERINDOPRIL ERBUMINE [Suspect]
     Route: 048
     Dates: end: 20111016
  2. PERINDOPRIL ERBUMINE [Suspect]
     Route: 048
     Dates: start: 20111017, end: 20111017
  3. ACETAMINOPHEN [Suspect]
     Indication: INTENTIONAL OVERDOSE
     Route: 048
     Dates: start: 20111017, end: 20111017
  4. CARBOSYMAG /FRA/ [Concomitant]
     Route: 048
  5. TRIMEPRAZINE TARTRATE [Suspect]
     Route: 048
     Dates: start: 20111017, end: 20111017
  6. NEXIUM [Concomitant]
     Route: 048
  7. TRAMADOL HCL [Concomitant]
     Indication: ANKYLOSING SPONDYLITIS
     Route: 048
  8. MULTAQ [Suspect]
     Route: 048
     Dates: start: 20111017, end: 20111017
  9. PERINDOPRIL ERBUMINE [Suspect]
     Indication: INTENTIONAL OVERDOSE
     Route: 048
     Dates: end: 20111016
  10. PERINDOPRIL ERBUMINE [Suspect]
     Route: 048
     Dates: start: 20111017, end: 20111017
  11. TRIMEPRAZINE TARTRATE [Suspect]
     Indication: INTENTIONAL OVERDOSE
     Route: 048
     Dates: end: 20111016
  12. MULTAQ [Suspect]
     Route: 048
     Dates: start: 20110330, end: 20111016
  13. MYOLASTAN [Concomitant]
     Indication: ANKYLOSING SPONDYLITIS
     Route: 048
  14. TRIMEPRAZINE TARTRATE [Suspect]
     Indication: INSOMNIA
     Route: 048
     Dates: end: 20111016
  15. TRIMEPRAZINE TARTRATE [Suspect]
     Route: 048
     Dates: start: 20111017, end: 20111017
  16. MULTAQ [Suspect]
     Indication: INTENTIONAL OVERDOSE
     Route: 048
     Dates: start: 20110330, end: 20111016
  17. REMICADE [Concomitant]
  18. MULTAQ [Suspect]
     Route: 048
     Dates: start: 20111017, end: 20111017
  19. ASPIRIN [Concomitant]
     Indication: ARRHYTHMIA
     Route: 048

REACTIONS (4)
  - CIRCULATORY COLLAPSE [None]
  - ARRHYTHMIA SUPRAVENTRICULAR [None]
  - MULTIPLE DRUG OVERDOSE INTENTIONAL [None]
  - BRADYCARDIA [None]
